FAERS Safety Report 5457712-0 (Version None)
Quarter: 2007Q3

REPORT INFORMATION
  Report Type: 
  Country: None (occurrence: None)
  Receive Date: 20070918
  Receipt Date: 20070719
  Transmission Date: 20080115
  Serious: No
  Sender: FDA-Public Use
  Company Number: US-ASTRAZENECA-2007UW04928

PATIENT
  Age: 17519 Day
  Sex: Female
  Weight: 90.7 kg

DRUGS (2)
  1. SEROQUEL [Suspect]
     Indication: BIPOLAR DISORDER
     Dosage: 50 MG, 100 MG, 200 MG
     Route: 048
     Dates: start: 20070310
  2. ALBUTEROL [Concomitant]

REACTIONS (2)
  - INCOHERENT [None]
  - NAUSEA [None]
